FAERS Safety Report 4850271-2 (Version None)
Quarter: 2005Q4

REPORT INFORMATION
  Report Type: 
  Country: None (occurrence: None)
  Receive Date: 20051123
  Receipt Date: 20051010
  Transmission Date: 20060501
  Serious: No
  Sender: FDA-Public Use
  Company Number: TPA2005A01219

PATIENT
  Age: 65 Year
  Sex: Female
  Weight: 53.0709 kg

DRUGS (4)
  1. ROZEREM [Suspect]
     Indication: INSOMNIA
     Dosage: 8 MG, QHS, PER ORAL
     Route: 048
     Dates: start: 20051006, end: 20051009
  2. PREMPRO 14/14 [Concomitant]
  3. SYNTHROID [Concomitant]
  4. MULTIVITAMIN [Concomitant]

REACTIONS (1)
  - INSOMNIA [None]
